FAERS Safety Report 14241499 (Version 1)
Quarter: 2017Q4

REPORT INFORMATION
  Report Type: Spontaneous
  Country: FR (occurrence: FR)
  Receive Date: 20171201
  Receipt Date: 20171201
  Transmission Date: 20180321
  Serious: Yes (Death, Hospitalization, Other)
  Sender: FDA-Public Use
  Company Number: FR-STRIDES ARCOLAB LIMITED-2017SP014220

PATIENT

DRUGS (6)
  1. BELATACEPT [Suspect]
     Active Substance: BELATACEPT
     Dosage: 5 MG/KG PER MONTH, UNK
     Route: 042
  2. BASILIXIMAB [Suspect]
     Active Substance: BASILIXIMAB
     Indication: RENAL TRANSPLANT
     Dosage: UNK
     Route: 065
  3. BELATACEPT [Suspect]
     Active Substance: BELATACEPT
     Indication: RENAL TRANSPLANT
     Dosage: 10 MG/KG ON DAY 1 (D1), D5, WEEK 2 (W2), W4, W8, W12
     Route: 042
  4. BELATACEPT [Suspect]
     Active Substance: BELATACEPT
     Dosage: UNK
  5. MYCOPHENOLATE MOFETIL. [Suspect]
     Active Substance: MYCOPHENOLATE MOFETIL
     Indication: RENAL TRANSPLANT
     Dosage: UNK
     Route: 065
  6. MYCOPHENOLATE MOFETIL. [Suspect]
     Active Substance: MYCOPHENOLATE MOFETIL
     Dosage: 500 MG, BID
     Route: 065

REACTIONS (19)
  - Lymphopenia [Unknown]
  - Hypogammaglobulinaemia [Unknown]
  - Hemiplegia [Unknown]
  - Hemiparesis [Unknown]
  - Disorientation [Unknown]
  - Neurological decompensation [Unknown]
  - Epstein-Barr viraemia [Unknown]
  - Progressive multifocal leukoencephalopathy [Fatal]
  - Visual impairment [Unknown]
  - Affective disorder [Unknown]
  - Aphasia [Unknown]
  - Muscular weakness [Unknown]
  - Blindness cortical [Unknown]
  - BK virus infection [Unknown]
  - Transplant rejection [Unknown]
  - Respiratory failure [Fatal]
  - Cytomegalovirus infection [Unknown]
  - Coma [Unknown]
  - Confusional state [Unknown]
